FAERS Safety Report 19351376 (Version 2)
Quarter: 2023Q2

REPORT INFORMATION
  Report Type: Spontaneous
  Country: US (occurrence: US)
  Receive Date: 20210531
  Receipt Date: 20230414
  Transmission Date: 20230722
  Serious: No
  Sender: FDA-Public Use
  Company Number: US-SA-SAC20210526000568

PATIENT
  Age: 61 Year
  Sex: Female

DRUGS (22)
  1. DUPIXENT [Suspect]
     Active Substance: DUPILUMAB
     Indication: Asthma
     Dosage: 300 MG, UNK
     Route: 058
     Dates: start: 20200724
  2. FOLIC ACID [Concomitant]
     Active Substance: FOLIC ACID
  3. HYDROCHLOROTHIAZIDE [Concomitant]
     Active Substance: HYDROCHLOROTHIAZIDE
  4. INVOKANA [Concomitant]
     Active Substance: CANAGLIFLOZIN
  5. JARDIANCE [Concomitant]
     Active Substance: EMPAGLIFLOZIN
  6. LANTUS [Concomitant]
     Active Substance: INSULIN GLARGINE
  7. MELOXICAM [Concomitant]
     Active Substance: MELOXICAM
  8. METFORMIN [Concomitant]
     Active Substance: METFORMIN HYDROCHLORIDE
  9. MONTELUKAST [Concomitant]
     Active Substance: MONTELUKAST SODIUM
     Indication: Asthma
  10. OMEPRAZOLE [Concomitant]
     Active Substance: OMEPRAZOLE
  11. PANTOPRAZOLE [Concomitant]
     Active Substance: PANTOPRAZOLE
  12. POTASSIUM CITRATE [Concomitant]
     Active Substance: POTASSIUM CITRATE
  13. PRAVASTATIN [Concomitant]
     Active Substance: PRAVASTATIN
  14. PREGABALIN [Concomitant]
     Active Substance: PREGABALIN
  15. FLUTICASONE PROPIONATE [Concomitant]
     Active Substance: FLUTICASONE PROPIONATE
  16. LIRAGLUTIDE [Concomitant]
     Active Substance: LIRAGLUTIDE
  17. ALLOPURINOL [Concomitant]
     Active Substance: ALLOPURINOL
  18. AMLODIPINE [Concomitant]
     Active Substance: AMLODIPINE BESYLATE
  19. BUPROPION HYDROCHLORIDE XL [Concomitant]
     Active Substance: BUPROPION HYDROCHLORIDE
  20. HYDRALAZINE [Concomitant]
     Active Substance: HYDRALAZINE HYDROCHLORIDE
  21. OXYBUTYNIN [Concomitant]
     Active Substance: OXYBUTYNIN
  22. HYDROCHLOROTHIAZIDE\TRIAMTERENE [Concomitant]
     Active Substance: HYDROCHLOROTHIAZIDE\TRIAMTERENE

REACTIONS (1)
  - Oral herpes [Unknown]
